FAERS Safety Report 22246368 (Version 6)
Quarter: 2023Q4

REPORT INFORMATION
  Report Type: Spontaneous
  Country: US (occurrence: US)
  Receive Date: 20230424
  Receipt Date: 20231113
  Transmission Date: 20240110
  Serious: Yes (Other)
  Sender: FDA-Public Use
  Company Number: US-PFIZER INC-202300165435

PATIENT
  Age: 76 Year
  Sex: Female
  Weight: 70.76 kg

DRUGS (3)
  1. IBRANCE [Suspect]
     Active Substance: PALBOCICLIB
     Indication: Breast cancer metastatic
     Dosage: A LITTLE OVER 7 CYCLES
  2. IBRANCE [Suspect]
     Active Substance: PALBOCICLIB
     Indication: Breast cancer metastatic
     Dosage: THREE WEEKS ON, ONE WEEK OFF
  3. FULVESTRANT [Suspect]
     Active Substance: FULVESTRANT
     Dosage: UNK, MONTHLY(ONCE A MONTH)

REACTIONS (10)
  - Neuropathy peripheral [Unknown]
  - Pain in extremity [Unknown]
  - Platelet count decreased [Unknown]
  - Protein total abnormal [Unknown]
  - Blood disorder [Unknown]
  - Bone marrow disorder [Unknown]
  - Renal disorder [Unknown]
  - Renal mass [Unknown]
  - Cholelithiasis [Unknown]
  - Hepatic steatosis [Unknown]
